FAERS Safety Report 7080727-6 (Version None)
Quarter: 2010Q4

REPORT INFORMATION
  Report Type: 
  Country: None (occurrence: None)
  Receive Date: 20101103
  Receipt Date: 20101022
  Transmission Date: 20110411
  Serious: Yes (Death)
  Sender: FDA-Public Use
  Company Number: US-CELGENEUS-163-21880-10092611

PATIENT
  Sex: Female

DRUGS (2)
  1. REVLIMID [Suspect]
     Route: 048
     Dates: start: 20100504, end: 20100101
  2. REVLIMID [Suspect]
     Route: 048
     Dates: start: 20100501, end: 20100928

REACTIONS (1)
  - MULTIPLE MYELOMA [None]
